FAERS Safety Report 22905629 (Version 2)
Quarter: 2024Q2

REPORT INFORMATION
  Report Type: Spontaneous
  Country: EG (occurrence: EG)
  Receive Date: 20230905
  Receipt Date: 20240411
  Transmission Date: 20240716
  Serious: Yes (Other)
  Sender: FDA-Public Use
  Company Number: EG-002147023-NVSC2023EG187457

PATIENT
  Sex: Female

DRUGS (1)
  1. KISQALI [Suspect]
     Active Substance: RIBOCICLIB
     Indication: Bone cancer
     Dosage: 2 DOSAGE FORM, QD (1 TABLET IN THE MORNING AND 1 TABLET IN THE EVENING FOR 9 MONTHS)
     Route: 065

REACTIONS (7)
  - Metastases to liver [Unknown]
  - Malignant neoplasm progression [Unknown]
  - Bone cancer [Unknown]
  - Metastasis [Unknown]
  - Product prescribing issue [Unknown]
  - Product prescribing issue [Unknown]
  - Off label use [Unknown]
